FAERS Safety Report 6706204-7 (Version None)
Quarter: 2010Q2

REPORT INFORMATION
  Report Type: 
  Country: None (occurrence: None)
  Receive Date: 20100430
  Receipt Date: 20100430
  Transmission Date: 20101027
  Serious: No
  Sender: FDA-Public Use
  Company Number: None

PATIENT
  Sex: Male
  Weight: 95 kg

DRUGS (10)
  1. TAXOTERE [Suspect]
     Dosage: 174 MG
  2. CALCIUM SUPPLEMENT [Concomitant]
  3. DIPHENHYDRAMINE [Concomitant]
  4. FERATAB [Concomitant]
  5. FISH OIL [Concomitant]
  6. METOPROLOL [Concomitant]
  7. MIRALAX [Concomitant]
  8. MULTI-VITAMIN [Concomitant]
  9. OXYCONTIN [Concomitant]
  10. WARFARIN SODIUM [Concomitant]

REACTIONS (1)
  - SUDDEN DEATH [None]
